FAERS Safety Report 18657303 (Version 1)
Quarter: 2020Q4

REPORT INFORMATION
  Report Type: Spontaneous
  Country: US (occurrence: US)
  Receive Date: 20201224
  Receipt Date: 20201224
  Transmission Date: 20210114
  Serious: Yes (Hospitalization)
  Sender: FDA-Public Use
  Company Number: US-LUPIN PHARMACEUTICALS INC.-2020-10717

PATIENT
  Age: 48 Year
  Sex: Female

DRUGS (6)
  1. TERIPARATIDE [Suspect]
     Active Substance: TERIPARATIDE
     Indication: HUNGRY BONE SYNDROME
     Dosage: 20 MICROGRAM, BID
     Route: 065
  2. CALCIUM [Suspect]
     Active Substance: CALCIUM
     Indication: HYPOCALCAEMIA
     Dosage: 2500 MILLIGRAM, EVERY 3 HOUR
     Route: 065
  3. CALCIUM [Suspect]
     Active Substance: CALCIUM
     Dosage: UNK (SHE REQUIRED UP TO 12G OF IV CALCIUM GLUCONATE DAILY TO KEEP HER CALCIUM IN THE 7 TO 8 MG/DL RA
     Route: 042
  4. CALCITRIOL. [Concomitant]
     Active Substance: CALCITRIOL
     Indication: HYPOCALCAEMIA
     Dosage: 2 MICROGRAM, BID
     Route: 065
  5. CALCIUM [Suspect]
     Active Substance: CALCIUM
     Indication: SUPPLEMENTATION THERAPY
     Dosage: UNK (CALCIUM CITRATE WAS ADDED)
     Route: 065
  6. CALCITRIOL. [Concomitant]
     Active Substance: CALCITRIOL
     Indication: SUPPLEMENTATION THERAPY

REACTIONS (1)
  - Hypercalcaemia [Unknown]
